FAERS Safety Report 4406789-X (Version None)
Quarter: 2004Q3

REPORT INFORMATION
  Report Type: 
  Country: None (occurrence: None)
  Receive Date: 20040723
  Receipt Date: 20040714
  Transmission Date: 20050211
  Serious: Yes (Death, Hospitalization)
  Sender: FDA-Public Use
  Company Number: GR-MERCK-0407GRC00006

PATIENT
  Age: 55 Year
  Sex: Male

DRUGS (4)
  1. [THERAPY UNSPECIFIED] [Concomitant]
     Indication: LYMPHOMA
     Route: 065
  2. DECADRON [Suspect]
     Indication: LOCALISED OEDEMA
     Route: 048
  3. PREDNISOLONE [Concomitant]
     Indication: VASCULITIC RASH
     Route: 065
  4. RITUXIMAB [Concomitant]
     Indication: LYMPHOMA
     Route: 065

REACTIONS (6)
  - DIABETES INSIPIDUS [None]
  - DIABETES MELLITUS [None]
  - DIFFUSE LARGE B-CELL LYMPHOMA [None]
  - ENCEPHALITIS [None]
  - HYPOGLOBULINAEMIA [None]
  - MENINGITIS CRYPTOCOCCAL [None]
